FAERS Safety Report 7132078-9 (Version None)
Quarter: 2010Q4

REPORT INFORMATION
  Report Type: 
  Country: None (occurrence: None)
  Receive Date: 20101130
  Receipt Date: 20101130
  Transmission Date: 20110411
  Serious: No
  Sender: FDA-Public Use
  Company Number: None

PATIENT
  Age: 46 Year
  Sex: Female
  Weight: 54.4316 kg

DRUGS (1)
  1. LEVAQUIN [Suspect]
     Indication: CELLULITIS
     Dosage: 1 PER DAY PO
     Route: 048
     Dates: start: 20100915, end: 20100922

REACTIONS (20)
  - ANXIETY [None]
  - ARTHRALGIA [None]
  - BODY TEMPERATURE DECREASED [None]
  - CONFUSIONAL STATE [None]
  - DEMENTIA [None]
  - DEPRESSION [None]
  - FATIGUE [None]
  - HYPERTENSION [None]
  - MUSCLE SPASMS [None]
  - MUSCLE TWITCHING [None]
  - NEUROPATHY PERIPHERAL [None]
  - NIGHTMARE [None]
  - PAIN [None]
  - PRURITUS [None]
  - PYREXIA [None]
  - SKIN ATROPHY [None]
  - SKIN ULCER [None]
  - TENDON RUPTURE [None]
  - TREMOR [None]
  - WEIGHT DECREASED [None]
